FAERS Safety Report 7131717-6 (Version None)
Quarter: 2010Q4

REPORT INFORMATION
  Report Type: 
  Country: None (occurrence: None)
  Receive Date: 20101201
  Receipt Date: 20101121
  Transmission Date: 20110411
  Serious: Yes (Other)
  Sender: FDA-Public Use
  Company Number: US-PFIZER INC-2010154971

PATIENT
  Sex: Female

DRUGS (2)
  1. LYRICA [Suspect]
     Indication: FIBROMYALGIA
     Dosage: 50 MG, UNK
  2. LYRICA [Suspect]
     Indication: ARTHRITIS

REACTIONS (3)
  - ANGER [None]
  - BLOOD PRESSURE INCREASED [None]
  - MIGRAINE [None]
